FAERS Safety Report 16712497 (Version 3)
Quarter: 2019Q3

REPORT INFORMATION
  Report Type: Report from Study
  Country: US (occurrence: US)
  Receive Date: 20190816
  Receipt Date: 20190913
  Transmission Date: 20191004
  Serious: Yes (Hospitalization)
  Sender: FDA-Public Use
  Company Number: US-ACTELION-A-US2019-194467

PATIENT
  Age: 47 Year
  Sex: Female

DRUGS (17)
  1. OXYCODONE/APAP [Concomitant]
     Active Substance: ACETAMINOPHEN\OXYCODONE HYDROCHLORIDE
     Dosage: 5-325 MG, TID
     Dates: start: 20190322, end: 20190627
  2. POTASSIUM CHLORIDE. [Concomitant]
     Active Substance: POTASSIUM CHLORIDE
     Dosage: 20 MEQ, QD
     Dates: start: 20190424, end: 20190724
  3. MIDODRINE [Concomitant]
     Active Substance: MIDODRINE
  4. DIGOX [Concomitant]
     Active Substance: DIGOXIN
  5. OPSUMIT [Suspect]
     Active Substance: MACITENTAN
     Indication: PULMONARY ARTERIAL HYPERTENSION
     Dosage: 10 MG, QD
     Route: 048
     Dates: start: 20190109
  6. AMLODIPINE [Concomitant]
     Active Substance: AMLODIPINE BESYLATE
  7. EPLERENONE. [Concomitant]
     Active Substance: EPLERENONE
  8. LYRICA [Concomitant]
     Active Substance: PREGABALIN
  9. MORPHINE [Concomitant]
     Active Substance: MORPHINE
  10. OMEPRAZOLE. [Concomitant]
     Active Substance: OMEPRAZOLE
  11. ATORVASTATIN [Concomitant]
     Active Substance: ATORVASTATIN
  12. ESCITALOPRAM [Concomitant]
     Active Substance: ESCITALOPRAM OXALATE
  13. PANTOPRAZOLE [Concomitant]
     Active Substance: PANTOPRAZOLE
  14. ALENDRONATE [Concomitant]
     Active Substance: ALENDRONATE SODIUM
  15. FERROUS SULFATE. [Concomitant]
     Active Substance: FERROUS SULFATE
  16. PREDNISONE. [Concomitant]
     Active Substance: PREDNISONE
     Dosage: 40 MG, QD WITH BREAKFAST
     Dates: start: 20180511, end: 20190529
  17. ZOLPIDEM [Concomitant]
     Active Substance: ZOLPIDEM TARTRATE
     Dosage: 12.5 MG, QPM
     Dates: start: 20190104, end: 20190523

REACTIONS (4)
  - Hospitalisation [Unknown]
  - Cardiac disorder [Unknown]
  - Disease complication [Unknown]
  - Pulmonary arterial hypertension [Unknown]

NARRATIVE: CASE EVENT DATE: 20190403
